FAERS Safety Report 20374740 (Version 7)
Quarter: 2023Q1

REPORT INFORMATION
  Report Type: Spontaneous
  Country: US (occurrence: US)
  Receive Date: 20220125
  Receipt Date: 20230314
  Transmission Date: 20230418
  Serious: Yes (Hospitalization, Other)
  Sender: FDA-Public Use
  Company Number: US-PFIZER INC-202200070394

PATIENT
  Age: 68 Year
  Sex: Female
  Weight: 94.35 kg

DRUGS (1)
  1. VYNDAMAX [Suspect]
     Active Substance: TAFAMIDIS
     Indication: Amyloidosis senile
     Dosage: 61 MG, 1X/DAY
     Route: 048
     Dates: start: 202106

REACTIONS (6)
  - Amyloidosis [Unknown]
  - Condition aggravated [Unknown]
  - Dyspnoea [Unknown]
  - Cardiac failure [Unknown]
  - Heart rate increased [Unknown]
  - Hypertension [Unknown]

NARRATIVE: CASE EVENT DATE: 20211101
